FAERS Safety Report 18920863 (Version 1)
Quarter: 2021Q1

REPORT INFORMATION
  Report Type: Spontaneous
  Country: US (occurrence: US)
  Receive Date: 20210222
  Receipt Date: 20210222
  Transmission Date: 20210420
  Serious: No
  Sender: FDA-Public Use
  Company Number: US-ALLERGAN-2014219US

PATIENT
  Age: 86 Year
  Sex: Female

DRUGS (2)
  1. OZURDEX [Suspect]
     Active Substance: DEXAMETHASONE
     Indication: NEOVASCULAR AGE-RELATED MACULAR DEGENERATION
     Dosage: 0.7 MG, SINGLE
     Route: 031
     Dates: start: 20200327, end: 20200327
  2. OZURDEX [Suspect]
     Active Substance: DEXAMETHASONE
     Indication: CHOROIDAL NEOVASCULARISATION

REACTIONS (1)
  - Off label use [Unknown]

NARRATIVE: CASE EVENT DATE: 20200327
